FAERS Safety Report 24253850 (Version 1)
Quarter: 2024Q3

REPORT INFORMATION
  Report Type: Spontaneous
  Country: TW (occurrence: None)
  Receive Date: 20240827
  Receipt Date: 20240827
  Transmission Date: 20241017
  Serious: Yes (Other)
  Sender: ASTRAZENECA
  Company Number: 2024A190655

PATIENT
  Age: 51 Year
  Sex: Male

DRUGS (2)
  1. OSIMERTINIB [Suspect]
     Active Substance: OSIMERTINIB
     Indication: Non-small cell lung cancer
     Route: 048
  2. PACLITAXEL [Concomitant]
     Active Substance: PACLITAXEL
     Dosage: 60 MG

REACTIONS (2)
  - Acquired gene mutation [Unknown]
  - Malignant neoplasm progression [Unknown]
